FAERS Safety Report 25275998 (Version 2)
Quarter: 2025Q2

REPORT INFORMATION
  Report Type: Spontaneous
  Country: US (occurrence: US)
  Receive Date: 20250507
  Receipt Date: 20250521
  Transmission Date: 20250717
  Serious: No
  Sender: ROCHE
  Company Number: US-ROCHE-10000274088

PATIENT
  Age: 79 Year
  Sex: Female
  Weight: 65.77 kg

DRUGS (12)
  1. VABYSMO [Suspect]
     Active Substance: FARICIMAB-SVOA
     Indication: Neovascular age-related macular degeneration
     Route: 050
  2. VABYSMO [Suspect]
     Active Substance: FARICIMAB-SVOA
  3. VABYSMO [Suspect]
     Active Substance: FARICIMAB-SVOA
  4. VABYSMO [Suspect]
     Active Substance: FARICIMAB-SVOA
  5. LISINOPRIL [Concomitant]
     Active Substance: LISINOPRIL
  6. VITAMIN B12 GUMMIES [Concomitant]
     Route: 048
  7. VITAMIN D2 [Concomitant]
     Active Substance: ERGOCALCIFEROL
     Route: 048
  8. ATORVASTATIN [Concomitant]
     Active Substance: ATORVASTATIN
     Route: 048
  9. MINERALS\VITAMINS [Concomitant]
     Active Substance: MINERALS\VITAMINS
     Route: 048
  10. PROPARACAINE [Concomitant]
     Active Substance: PROPARACAINE
  11. AKTEN [Concomitant]
     Active Substance: LIDOCAINE HYDROCHLORIDE
  12. BETADINE [Concomitant]
     Active Substance: POVIDONE-IODINE

REACTIONS (2)
  - Foreign body sensation in eyes [Not Recovered/Not Resolved]
  - Asthenopia [Not Recovered/Not Resolved]

NARRATIVE: CASE EVENT DATE: 20250427
